FAERS Safety Report 16033962 (Version 8)
Quarter: 2019Q3

REPORT INFORMATION
  Report Type: Spontaneous
  Country: US (occurrence: US)
  Receive Date: 20190305
  Receipt Date: 20190905
  Transmission Date: 20191004
  Serious: Yes (Congenital Anomaly, Other)
  Sender: FDA-Public Use
  Company Number: PHEH2019US009524

PATIENT
  Sex: Female

DRUGS (4)
  1. ZOFRAN [Suspect]
     Active Substance: ONDANSETRON HYDROCHLORIDE
     Indication: FOETAL EXPOSURE DURING PREGNANCY
     Route: 064
  2. ONDANSETRON [Suspect]
     Active Substance: ONDANSETRON
     Indication: FOETAL EXPOSURE DURING PREGNANCY
     Route: 064
  3. ONDANSETRON [Suspect]
     Active Substance: ONDANSETRON
     Indication: FOETAL EXPOSURE DURING PREGNANCY
     Route: 064
  4. ZOFRAN [Suspect]
     Active Substance: ONDANSETRON HYDROCHLORIDE
     Indication: FOETAL EXPOSURE DURING PREGNANCY
     Route: 064

REACTIONS (64)
  - Aplasia cutis congenita [Unknown]
  - Congenital skin dimples [Unknown]
  - Microgenia [Unknown]
  - Conductive deafness [Unknown]
  - Gross motor delay [Unknown]
  - Upper respiratory tract infection [Unknown]
  - Fall [Unknown]
  - Scar [Unknown]
  - Speech disorder [Unknown]
  - Sleep apnoea syndrome [Unknown]
  - Impaired healing [Unknown]
  - Conjunctivitis [Unknown]
  - Selective eating disorder [Unknown]
  - Neonatal respiratory distress [Unknown]
  - Sleep disorder [Unknown]
  - Feeding disorder [Unknown]
  - Gastrooesophageal reflux disease [Unknown]
  - Nausea [Unknown]
  - Dehiscence [Unknown]
  - Nasal congestion [Unknown]
  - Dermatitis contact [Unknown]
  - Dysmorphism [Unknown]
  - Cystic fibrosis [Unknown]
  - Eustachian tube dysfunction [Unknown]
  - Breathing-related sleep disorder [Unknown]
  - Scab [Unknown]
  - Pyrexia [Unknown]
  - Retrognathia [Unknown]
  - Poor feeding infant [Unknown]
  - Skin lesion [Unknown]
  - Oedema [Unknown]
  - Cleft palate [Unknown]
  - Staphylococcal infection [Unknown]
  - Skin laceration [Unknown]
  - Language disorder [Unknown]
  - Underweight [Unknown]
  - Ear infection [Unknown]
  - Deafness [Unknown]
  - Interstitial lung disease [Unknown]
  - Cough [Unknown]
  - Otitis media [Unknown]
  - Dental caries [Unknown]
  - Influenza [Unknown]
  - Retinal pigmentation [Unknown]
  - Vomiting [Unknown]
  - Rhinorrhoea [Unknown]
  - Rash [Unknown]
  - Fine motor delay [Unknown]
  - Viral infection [Unknown]
  - Diarrhoea neonatal [Unknown]
  - Bronchiolitis [Unknown]
  - Otitis media chronic [Unknown]
  - Foetal exposure during pregnancy [Unknown]
  - Nasal injury [Unknown]
  - Fatigue [Unknown]
  - Chest pain [Unknown]
  - Otorrhoea [Unknown]
  - Pierre Robin syndrome [Unknown]
  - Pneumonia [Unknown]
  - Eye infection [Unknown]
  - Rhinitis allergic [Unknown]
  - Dysphagia [Unknown]
  - Dry skin [Unknown]
  - Constipation [Unknown]
